FAERS Safety Report 14496354 (Version 3)
Quarter: 2018Q1

REPORT INFORMATION
  Report Type: Spontaneous
  Country: DE (occurrence: DE)
  Receive Date: 20180207
  Receipt Date: 20180304
  Transmission Date: 20180509
  Serious: Yes (Hospitalization, Other)
  Sender: FDA-Public Use
  Company Number: DE-AUROBINDO-AUR-APL-2018-005092

PATIENT
  Age: 67 Year
  Sex: Male

DRUGS (23)
  1. AMLODIPINE [Suspect]
     Active Substance: AMLODIPINE BESYLATE
     Indication: PRODUCT USED FOR UNKNOWN INDICATION
     Dosage: DAILY DOSE: 10 MG MILLGRAM(S) EVERY DAYS
     Route: 065
  2. HUMIRA [Suspect]
     Active Substance: ADALIMUMAB
     Indication: RHEUMATOID ARTHRITIS
     Dosage: 40 MG, Q2WK
     Route: 058
     Dates: start: 20121210
  3. DEKRISTOL [Suspect]
     Active Substance: CHOLECALCIFEROL
     Indication: PRODUCT USED FOR UNKNOWN INDICATION
     Dosage: DAILY DOSE: 20000 IU INTERNATIONAL UNIT(S) EVERY WEEKS
     Route: 048
  4. ELIQUIS [Suspect]
     Active Substance: APIXABAN
     Dosage: 2 DF, PER DAY
     Route: 065
  5. METHOTREXATE (METHOTREXATE SODIUM) [Suspect]
     Active Substance: METHOTREXATE SODIUM
     Indication: PRODUCT USED FOR UNKNOWN INDICATION
     Dosage: DAILY DOSE: 15 MG MILLGRAM(S) EVERY WEEKS
     Route: 048
  6. DEKRISTOL [Suspect]
     Active Substance: CHOLECALCIFEROL
     Dosage: 20000 IU, QWK
     Route: 048
  7. VALSARTAN. [Suspect]
     Active Substance: VALSARTAN
     Dosage: DAILY DOSE: 320 MG MILLGRAM(S) EVERY DAYS
     Route: 048
  8. FOLIC ACID. [Suspect]
     Active Substance: FOLIC ACID
     Indication: PRODUCT USED FOR UNKNOWN INDICATION
     Dosage: DAILY DOSE: 5 MG MILLGRAM(S) EVERY WEEKS
     Route: 065
  9. HCT [Suspect]
     Active Substance: HYDROCHLOROTHIAZIDE
     Indication: PRODUCT USED FOR UNKNOWN INDICATION
     Dosage: DAILY DOSE: 12.5 MG MILLGRAM(S) EVERY DAYS
     Route: 048
  10. HCT [Suspect]
     Active Substance: HYDROCHLOROTHIAZIDE
  11. ELIQUIS [Suspect]
     Active Substance: APIXABAN
     Indication: CEREBROVASCULAR ACCIDENT PROPHYLAXIS
     Dosage: (2)
  12. ELIQUIS [Suspect]
     Active Substance: APIXABAN
     Dosage: 2 DF, PER DAY
     Route: 065
  13. FOLIC ACID. [Suspect]
     Active Substance: FOLIC ACID
     Dosage: 5 MG, QWK
     Route: 065
  14. FALITHROM [Suspect]
     Active Substance: PHENPROCOUMON
     Dosage: AS REQUIRED PER MEASUREMENT ()
  15. FALITHROM [Suspect]
     Active Substance: PHENPROCOUMON
     Dosage: UNK, PRN (AS REQUIRED) () ; AS NECESSARY
     Route: 065
  16. VALSARTAN. [Suspect]
     Active Substance: VALSARTAN
     Dosage: 320 MG, QD
     Route: 048
  17. ELIQUIS [Suspect]
     Active Substance: APIXABAN
     Indication: PRODUCT USED FOR UNKNOWN INDICATION
     Dosage: UNK
     Route: 065
  18. VALSARTAN. [Suspect]
     Active Substance: VALSARTAN
     Indication: PRODUCT USED FOR UNKNOWN INDICATION
     Dosage: DAILY DOSE: 320 MG MILLGRAM(S) EVERY DAYS
     Route: 048
  19. METHOTREXATE (METHOTREXATE SODIUM) [Suspect]
     Active Substance: METHOTREXATE SODIUM
     Dosage: 15 MG, QWK
     Route: 048
  20. FALITHROM [Suspect]
     Active Substance: PHENPROCOUMON
     Indication: PRODUCT USED FOR UNKNOWN INDICATION
     Dosage: AS REQUIRED PER MEASUREMENT
     Route: 065
  21. FALITHROM [Suspect]
     Active Substance: PHENPROCOUMON
     Dosage: UNK, PRN ()
     Route: 065
  22. HCT [Suspect]
     Active Substance: HYDROCHLOROTHIAZIDE
     Dosage: 12.5 MG, QD (EVERY DAY)
     Route: 048
  23. HCT [Suspect]
     Active Substance: HYDROCHLOROTHIAZIDE
     Dosage: 12.5 MG, QD
     Route: 048

REACTIONS (3)
  - Facial paresis [Not Recovered/Not Resolved]
  - Hemiparesis [Not Recovered/Not Resolved]
  - Cerebral infarction [Not Recovered/Not Resolved]

NARRATIVE: CASE EVENT DATE: 20170301
